FAERS Safety Report 5359889-4 (Version None)
Quarter: 2007Q2

REPORT INFORMATION
  Report Type: 
  Country: None (occurrence: None)
  Receive Date: 20070601
  Receipt Date: 20070410
  Transmission Date: 20071010
  Serious: Yes (Other)
  Sender: FDA-Public Use
  Company Number: K200700455

PATIENT
  Age: 30 Year
  Sex: Female
  Weight: 91.6 kg

DRUGS (2)
  1. CORTISPORIN [Suspect]
     Indication: EAR INFECTION
     Dosage: 5 DROPS IN EACH EAR, TID, AURICULAR
     Route: 001
     Dates: start: 20070214, end: 20070219
  2. K PACK [Concomitant]

REACTIONS (8)
  - AURICULAR SWELLING [None]
  - BLISTER [None]
  - EAR PRURITUS [None]
  - ERYTHEMA [None]
  - FEELING HOT [None]
  - HYPERSENSITIVITY [None]
  - HYPOACUSIS [None]
  - INFLAMMATION [None]
